FAERS Safety Report 22936615 (Version 4)
Quarter: 2023Q4

REPORT INFORMATION
  Report Type: Report from Study
  Country: CA (occurrence: CA)
  Receive Date: 20230912
  Receipt Date: 20231226
  Transmission Date: 20240110
  Serious: Yes (Death, Hospitalization, Other)
  Sender: FDA-Public Use
  Company Number: CA-ABBVIE-5376674

PATIENT
  Sex: Female
  Weight: 80 kg

DRUGS (15)
  1. VENCLEXTA [Suspect]
     Active Substance: VENETOCLAX
     Indication: Acute myeloid leukaemia
     Dosage: 100 MG (400 MG) DAILY, FORM STRENGTH: 100MG, LAST ADMIN DATE: 2023
     Route: 048
     Dates: start: 20230619
  2. VENCLEXTA [Suspect]
     Active Substance: VENETOCLAX
     Indication: Acute myeloid leukaemia
     Dosage: 100 MG / 400 MG, FORM STRENGTH: 100 MG, THE LAST ADMIN DATE WAS 2023.
     Route: 048
     Dates: start: 2023
  3. NABILONE [Concomitant]
     Active Substance: NABILONE
     Indication: Product used for unknown indication
     Dosage: DOSE-0.25 MG
  4. HUMULIN N [Concomitant]
     Active Substance: INSULIN HUMAN
     Indication: Product used for unknown indication
     Dosage: FREQUENCY TEXT: AT BREAKFAST
  5. SULFATRIM [Concomitant]
     Active Substance: SULFAMETHOXAZOLE\TRIMETHOPRIM
     Indication: Product used for unknown indication
     Dosage: 800/160MG
  6. PANTOPRAZOLE [Concomitant]
     Active Substance: PANTOPRAZOLE
     Indication: Product used for unknown indication
  7. AZACITIDINE [Concomitant]
     Active Substance: AZACITIDINE
     Indication: Acute myeloid leukaemia
     Dosage: FREQUENCY TEXT: DAILY FOR 7 DAYS
     Dates: end: 20230622
  8. LEVOFLOXACIN [Concomitant]
     Active Substance: LEVOFLOXACIN
     Indication: Product used for unknown indication
  9. Hyderm [Concomitant]
     Indication: Rash
     Dosage: FREQUENCY TEXT: TWICE DAILY, 1 %
  10. VALACYCLOVIR [Concomitant]
     Active Substance: VALACYCLOVIR HYDROCHLORIDE
     Indication: Product used for unknown indication
  11. INSULIN ASPART [Concomitant]
     Active Substance: INSULIN ASPART
     Indication: Product used for unknown indication
     Dosage: FREQUENCY TEXT: BEFORE MEALS
  12. APIXABAN [Concomitant]
     Active Substance: APIXABAN
     Indication: Product used for unknown indication
  13. PREDNISONE [Concomitant]
     Active Substance: PREDNISONE
     Indication: Product used for unknown indication
     Route: 048
  14. PREDNISONE [Concomitant]
     Active Substance: PREDNISONE
     Indication: Product used for unknown indication
     Route: 048
  15. PREDNISONE [Concomitant]
     Active Substance: PREDNISONE
     Indication: Product used for unknown indication
     Route: 048

REACTIONS (7)
  - Acute myeloid leukaemia refractory [Fatal]
  - Drug ineffective [Unknown]
  - Cellulitis [Recovering/Resolving]
  - Bacteraemia [Recovering/Resolving]
  - Skin disorder [Not Recovered/Not Resolved]
  - Diabetic ketoacidosis [Unknown]
  - Sepsis [Unknown]

NARRATIVE: CASE EVENT DATE: 20230101
